FAERS Safety Report 19782965 (Version 1)
Quarter: 2021Q3

REPORT INFORMATION
  Report Type: Spontaneous
  Country: FR (occurrence: FR)
  Receive Date: 20210903
  Receipt Date: 20210903
  Transmission Date: 20211014
  Serious: Yes (Hospitalization, Other)
  Sender: FDA-Public Use
  Company Number: FR-AUROBINDO-AUR-APL-2021-037295

PATIENT
  Age: 52 Year
  Sex: Male
  Weight: 86 kg

DRUGS (2)
  1. DOCETAXEL. [Suspect]
     Active Substance: DOCETAXEL
     Indication: OROPHARYNGEAL SQUAMOUS CELL CARCINOMA
     Dosage: 146.5 MILLIGRAM
     Route: 042
     Dates: start: 20210427, end: 20210427
  2. CISPLATIN. [Suspect]
     Active Substance: CISPLATIN
     Indication: OROPHARYNGEAL SQUAMOUS CELL CARCINOMA
     Dosage: 146.5 MILLIGRAM
     Route: 042
     Dates: start: 20210427, end: 20210427

REACTIONS (4)
  - Anaemia [Recovering/Resolving]
  - Thrombocytopenia [Recovered/Resolved]
  - Mucosal inflammation [Recovered/Resolved]
  - Colitis [Recovered/Resolved]

NARRATIVE: CASE EVENT DATE: 20210505
